FAERS Safety Report 9118707 (Version 1)
Quarter: 2013Q1

REPORT INFORMATION
  Report Type: Spontaneous
  Country: US (occurrence: None)
  Receive Date: 20130221
  Receipt Date: 20130221
  Transmission Date: 20140127
  Serious: Yes (Life-Threatening, Hospitalization)
  Sender: FDA-Public Use
  Company Number: None

PATIENT
  Age: 47 Year
  Sex: Female
  Weight: 52.16 kg

DRUGS (1)
  1. CEFOTETAN 1GM [Suspect]
     Indication: PROPHYLAXIS
     Route: 040
     Dates: start: 20120914, end: 20120914

REACTIONS (2)
  - Anaphylactic reaction [None]
  - Acute myocardial infarction [None]
